FAERS Safety Report 21832854 (Version 1)
Quarter: 2023Q1

REPORT INFORMATION
  Report Type: Spontaneous
  Country: US (occurrence: US)
  Receive Date: 20230106
  Receipt Date: 20230106
  Transmission Date: 20230417
  Serious: No
  Sender: FDA-Public Use
  Company Number: US-ALLERGAN-2237881US

PATIENT
  Age: 60 Year
  Sex: Female
  Weight: 74.842 kg

DRUGS (1)
  1. QULIPTA [Suspect]
     Active Substance: ATOGEPANT
     Indication: Migraine
     Dosage: 1 DF, QD
     Route: 048
     Dates: start: 20221101, end: 20221114

REACTIONS (10)
  - Paraesthesia [Recovering/Resolving]
  - Blood potassium decreased [Unknown]
  - Dyspnoea [Recovered/Resolved]
  - Heart rate increased [Recovering/Resolving]
  - Dyspepsia [Unknown]
  - Paraesthesia oral [Recovering/Resolving]
  - Weight decreased [Recovering/Resolving]
  - Diarrhoea [Unknown]
  - Decreased appetite [Recovering/Resolving]
  - Nausea [Recovering/Resolving]

NARRATIVE: CASE EVENT DATE: 20221101
